FAERS Safety Report 5377880-9 (Version None)
Quarter: 2007Q2

REPORT INFORMATION
  Report Type: 
  Country: None (occurrence: None)
  Receive Date: 20070629
  Receipt Date: 20070618
  Transmission Date: 20071010
  Serious: Yes (Hospitalization, Other)
  Sender: FDA-Public Use
  Company Number: 234773K07USA

PATIENT
  Age: 32 Year
  Sex: Female

DRUGS (2)
  1. REBIF [Suspect]
     Indication: MULTIPLE SCLEROSIS
     Dosage: SEE IMAGE
     Dates: start: 20060501, end: 20061001
  2. REBIF [Suspect]
     Indication: MULTIPLE SCLEROSIS
     Dosage: SEE IMAGE
     Dates: start: 20070606

REACTIONS (3)
  - INJECTION SITE ERYTHEMA [None]
  - LIMB DISCOMFORT [None]
  - THYROID CANCER [None]
